FAERS Safety Report 4358358-8 (Version None)
Quarter: 2004Q2

REPORT INFORMATION
  Report Type: 
  Country: None (occurrence: None)
  Receive Date: 20040514
  Receipt Date: 20040112
  Transmission Date: 20050107
  Serious: Yes (Other)
  Sender: FDA-Public Use
  Company Number: PHEH2004US00795

PATIENT
  Age: 60 Year
  Sex: Male
  Weight: 91 kg

DRUGS (11)
  1. GLEEVEC [Suspect]
     Indication: GASTROINTESTINAL STROMAL TUMOUR
     Dosage: 400 MG, QD
     Route: 048
     Dates: start: 20030303, end: 20030318
  2. GLEEVEC [Suspect]
     Dosage: 400 MG, BID
     Route: 048
     Dates: start: 20030319, end: 20030428
  3. GLEEVEC [Suspect]
     Dosage: TAPER UPWARD
     Route: 048
     Dates: start: 20031003
  4. REGULAR INSULIN [Concomitant]
     Dosage: 20 IU, UNK
  5. NPH INSULIN [Concomitant]
     Dosage: 42 IU, UNK
  6. PRAVACHOL [Concomitant]
     Dosage: 20 MG, UNK
  7. ENALAPRIL MALEATE [Concomitant]
     Dosage: 5 MG, UNK
  8. FOLIC ACID [Concomitant]
     Dosage: 1 MG, UNK
  9. ASPIRIN [Concomitant]
  10. ACETAMINOPHEN [Concomitant]
     Dosage: 500 MG, UNK
  11. METRONIDAZOLE [Concomitant]
     Dosage: 750 MG, UNK

REACTIONS (2)
  - MEGACOLON ACQUIRED [None]
  - TREATMENT NONCOMPLIANCE [None]
